FAERS Safety Report 14499285 (Version 1)
Quarter: 2018Q1

REPORT INFORMATION
  Report Type: Spontaneous
  Country: US (occurrence: US)
  Receive Date: 20180207
  Receipt Date: 20180207
  Transmission Date: 20180509
  Serious: No
  Sender: FDA-Public Use
  Company Number: US-JAZZ-2017-US-015679

PATIENT
  Age: 37 Year
  Sex: Female

DRUGS (2)
  1. PRIALT [Suspect]
     Active Substance: ZICONOTIDE ACETATE
     Indication: PAIN
     Dosage: 0.012 ?G, QH
     Route: 037
     Dates: start: 20171115
  2. MORPHINE [Suspect]
     Active Substance: MORPHINE
     Indication: PAIN
     Dosage: UNK MG, QH
     Route: 037
     Dates: end: 20171115

REACTIONS (2)
  - Withdrawal syndrome [Unknown]
  - Device issue [Unknown]

NARRATIVE: CASE EVENT DATE: 20171119
